FAERS Safety Report 4709349-6 (Version None)
Quarter: 2005Q3

REPORT INFORMATION
  Report Type: 
  Country: None (occurrence: None)
  Receive Date: 20050706
  Receipt Date: 20050624
  Transmission Date: 20060218
  Serious: Yes (Hospitalization, Other)
  Sender: FDA-Public Use
  Company Number: 2005JP000753

PATIENT
  Sex: Male
  Weight: 50 kg

DRUGS (7)
  1. PROTOPIC [Suspect]
     Indication: DERMATITIS ATOPIC
     Dosage: 0.10 %,UNK; TOPICAL
     Route: 061
     Dates: start: 20020626, end: 20050329
  2. LOCOID (HYDROCORTISONE BUTYRATE) CREAM [Concomitant]
  3. GENTACIN (GENTAMICIN SULFATE) CREAM [Concomitant]
  4. BLEOMYCIN (BLEOMYCIN) OINTMENT [Concomitant]
  5. FUCIDIN LEO (FUSIDATE SODIUM) OINTMENT [Concomitant]
  6. ALLEGRA (FEXOFENADINE HYDROCHLORIDE) TABLET [Concomitant]
  7. BLEOMYCIN SULFATE (BLEOMYCIN SULFATE) OINTMENT [Concomitant]

REACTIONS (6)
  - ACTINIC KERATOSIS [None]
  - SCAR [None]
  - SKIN ATROPHY [None]
  - SKIN ULCER [None]
  - SQUAMOUS CELL CARCINOMA [None]
  - SUNBURN [None]
